FAERS Safety Report 5970147 (Version 3)
Quarter: 2014Q3

REPORT INFORMATION
  Report Type: Spontaneous
  Country: US (occurrence: US)
  Receive Date: 20051201
  Receipt Date: 20140902
  Transmission Date: 20150326
  Serious: Yes (Hospitalization, Other)
  Sender: FDA-Public Use
  Company Number: 2005PV000443

PATIENT
  Age: 55 Year
  Sex: Female
  Weight: 90.72 kg

DRUGS (4)
  1. BYETTA [Suspect]
     Active Substance: EXENATIDE
     Indication: TYPE 2 DIABETES MELLITUS
     Dosage: 16JUL2005-08SEP2005?2007-JUN2014,LAST DOSE WAS 10MCG
     Route: 058
     Dates: start: 20050716
  2. GLIPIZIDE. [Concomitant]
     Active Substance: GLIPIZIDE
  3. ACTOS [Concomitant]
     Active Substance: PIOGLITAZONE HYDROCHLORIDE
     Indication: TYPE 2 DIABETES MELLITUS
     Dosage: UNK-JUL2005
     Dates: start: 20050909, end: 20050909
  4. GLUCOPHAGE [Concomitant]
     Active Substance: METFORMIN HYDROCHLORIDE
     Indication: TYPE 2 DIABETES MELLITUS
     Dates: start: 20050909, end: 20050909

REACTIONS (7)
  - Bone density decreased [Unknown]
  - Dizziness [Unknown]
  - Lower limb fracture [Not Recovered/Not Resolved]
  - Urticaria [Recovered/Resolved]
  - Blood glucose decreased [Unknown]
  - Injection site reaction [Recovered/Resolved]
  - Pruritus [Not Recovered/Not Resolved]

NARRATIVE: CASE EVENT DATE: 20050716
